FAERS Safety Report 6923191-7 (Version None)
Quarter: 2010Q3

REPORT INFORMATION
  Report Type: 
  Country: None (occurrence: None)
  Receive Date: 20100813
  Receipt Date: 20100802
  Transmission Date: 20110219
  Serious: Yes (Life-Threatening, Hospitalization, Other)
  Sender: FDA-Public Use
  Company Number: AU-NOVOPROD-312556

PATIENT
  Sex: Male
  Weight: 83.7 kg

DRUGS (8)
  1. INSULIN DETEMIR FLEXPEN [Suspect]
     Indication: TYPE 1 DIABETES MELLITUS
     Dosage: 37 U, QD
     Dates: start: 20100512, end: 20100802
  2. INSULIN DETEMIR FLEXPEN [Suspect]
     Dosage: 37 UNK, QD
     Dates: start: 20100804
  3. NOVORAPID FLEXPEN [Suspect]
     Indication: TYPE 1 DIABETES MELLITUS
     Dosage: 35 U, QD (3U PER CARB (15G CHO)
     Dates: start: 20100512, end: 20100802
  4. NOVORAPID FLEXPEN [Suspect]
     Dosage: 35 U, QD (3U PER CARB (15G CHO)
     Dates: start: 20100804
  5. PANTOPRAZOLE [Concomitant]
     Indication: REFLUX GASTRITIS
     Dosage: 40 MG, QD
     Route: 048
     Dates: start: 20090101
  6. ASPIRIN [Concomitant]
     Indication: ATRIAL FLUTTER
     Dosage: 100 MG, QD
     Dates: start: 20100520
  7. ISOPTIN                            /00014301/ [Concomitant]
     Indication: ATRIAL FLUTTER
     Dosage: 180 MG, QD
     Route: 048
     Dates: start: 20100520
  8. FLECAINIDE ACETATE [Concomitant]
     Indication: ATRIAL FLUTTER
     Dosage: 100 MG, QD
     Route: 048
     Dates: start: 20100520

REACTIONS (1)
  - HYPOGLYCAEMIA [None]
